FAERS Safety Report 7266961-0 (Version None)
Quarter: 2011Q1

REPORT INFORMATION
  Report Type: 
  Country: None (occurrence: None)
  Receive Date: 20110201
  Receipt Date: 20110126
  Transmission Date: 20110831
  Serious: Yes (Hospitalization)
  Sender: FDA-Public Use
  Company Number: JP-BRISTOL-MYERS SQUIBB COMPANY-15490840

PATIENT
  Age: 65 Year
  Weight: 64 kg

DRUGS (10)
  1. FERROUS CITRATE [Concomitant]
     Indication: HAEMOGLOBIN DECREASED
     Route: 048
     Dates: start: 20110107
  2. CISPLATIN [Suspect]
     Indication: CERVIX CARCINOMA
     Dosage: CYCLE 7 STARTED ON 22DEC2010 CYCLE 6 STARTED ON 12NOV2010 CYCLE 1 STARTED ON 24JUN2010
     Route: 042
  3. S-1 [Suspect]
     Indication: CERVIX CARCINOMA
     Dosage: CYCLE 1 24JUN-07JUL2009. CYCLE 7 22DEC10-04JAN11 CYCLE 6:12NOV2010
     Route: 048
     Dates: start: 20090624
  4. PRIMPERAN TAB [Concomitant]
     Indication: ABDOMINAL DISCOMFORT
     Dosage: TABS
     Route: 048
     Dates: start: 20100625
  5. PRIMPERAN TAB [Concomitant]
     Indication: PROPHYLAXIS
     Dosage: TABS
     Route: 048
     Dates: start: 20100625
  6. KETOPROFEN [Concomitant]
     Indication: BACK PAIN
     Dosage: EXTERNAL USE
     Route: 048
     Dates: start: 20101021
  7. RINDERON-VG [Concomitant]
     Indication: RASH
     Dosage: EXTERNAL USE
     Route: 048
     Dates: start: 20100701
  8. NORVASC [Concomitant]
     Indication: HYPERTENSION
     Dosage: TABS
     Route: 048
     Dates: start: 20050101
  9. BLOPRESS [Concomitant]
     Indication: HYPERTENSION
     Dosage: TABS
     Route: 048
     Dates: start: 20050101
  10. LOPEMIN [Concomitant]
     Indication: PROPHYLAXIS AGAINST DIARRHOEA
     Dosage: CAPS
     Route: 048
     Dates: start: 20100726

REACTIONS (1)
  - DEEP VEIN THROMBOSIS [None]
